FAERS Safety Report 17418332 (Version 1)
Quarter: 2020Q1

REPORT INFORMATION
  Report Type: Spontaneous
  Country: PA (occurrence: PA)
  Receive Date: 20200214
  Receipt Date: 20200214
  Transmission Date: 20200409
  Serious: Yes (Death, Other)
  Sender: FDA-Public Use
  Company Number: PA-SA-2020SA036213

PATIENT
  Age: 71 Year
  Sex: Female
  Weight: 50 kg

DRUGS (1)
  1. LANTUS SOLOSTAR [Suspect]
     Active Substance: INSULIN GLARGINE
     Indication: DIABETES MELLITUS
     Dosage: EVERY 12 HOURS
     Route: 065

REACTIONS (2)
  - Pancreatic carcinoma [Fatal]
  - Inappropriate schedule of product administration [Unknown]
